FAERS Safety Report 7395124-3 (Version None)
Quarter: 2011Q2

REPORT INFORMATION
  Report Type: 
  Country: None (occurrence: None)
  Receive Date: 20110405
  Receipt Date: 20110323
  Transmission Date: 20111010
  Serious: Yes (Hospitalization, Other)
  Sender: FDA-Public Use
  Company Number: PHHY2011DE19860

PATIENT
  Sex: Female

DRUGS (6)
  1. HYDROCHLOROTHIAZIDE [Concomitant]
     Indication: HYPERTENSION
     Dosage: 1-0-0
     Route: 048
  2. DELIX PLUS [Concomitant]
     Dosage: 1-0-0
     Route: 048
  3. ZOMETA [Suspect]
     Indication: BREAST CANCER
     Dosage: 04 MG EVERY 04 WEEKS
     Route: 042
     Dates: start: 20100201, end: 20110217
  4. SIMVAHEXAL [Concomitant]
     Dosage: 20 MG, QD
     Route: 048
  5. ASPIRIN [Concomitant]
     Indication: HYPERTENSION
     Dosage: UNK
     Route: 048
     Dates: start: 20110301
  6. BELOC MITE [Concomitant]
     Dosage: 1-0-1
     Route: 048

REACTIONS (4)
  - PAIN IN EXTREMITY [None]
  - DYSPNOEA [None]
  - ACUTE MYOCARDIAL INFARCTION [None]
  - CHEST DISCOMFORT [None]
